FAERS Safety Report 15765304 (Version 2)
Quarter: 2019Q2

REPORT INFORMATION
  Report Type: Spontaneous
  Country: JP (occurrence: JP)
  Receive Date: 20181227
  Receipt Date: 20190520
  Transmission Date: 20190711
  Serious: Yes (Hospitalization)
  Sender: FDA-Public Use
  Company Number: JP-SA-2018SA390312

PATIENT
  Age: 69 Year
  Sex: Female

DRUGS (7)
  1. ELPLAT [Suspect]
     Active Substance: OXALIPLATIN
     Indication: RECTAL CANCER
     Dosage: UNK UNK, QD
     Route: 041
  2. CALCIUM LEVOFOLINATE [Suspect]
     Active Substance: LEVOLEUCOVORIN CALCIUM
     Indication: RECTAL CANCER
     Dosage: UNK UNK, QD
     Route: 041
  3. CYRAMZA [Concomitant]
     Active Substance: RAMUCIRUMAB
     Dosage: UNK
  4. XELODA [Concomitant]
     Active Substance: CAPECITABINE
  5. CAMPTO [Suspect]
     Active Substance: IRINOTECAN
     Indication: RECTAL CANCER
     Dosage: UNK UNK, QD
     Route: 041
  6. 5-FU [FLUOROURACIL] [Concomitant]
     Active Substance: FLUOROURACIL
     Dosage: UNK
  7. AVASTIN [Concomitant]
     Active Substance: BEVACIZUMAB
     Dosage: UNK

REACTIONS (2)
  - Incarcerated hiatus hernia [Unknown]
  - Diaphragmatic rupture [Unknown]
